FAERS Safety Report 16562689 (Version 1)
Quarter: 2019Q3

REPORT INFORMATION
  Report Type: Spontaneous
  Country: US (occurrence: US)
  Receive Date: 20190711
  Receipt Date: 20190711
  Transmission Date: 20191004
  Serious: Yes (Other)
  Sender: FDA-Public Use
  Company Number: US-LEUCADIA PHARMACEUTICALS-2019LEU000042

PATIENT

DRUGS (11)
  1. METRONIDAZOLE. [Concomitant]
     Active Substance: METRONIDAZOLE
     Indication: SEPTIC SHOCK
  2. NOREPINEPHRINE. [Concomitant]
     Active Substance: NOREPINEPHRINE
     Indication: HYPOTENSION
  3. CEFEPIME [Concomitant]
     Active Substance: CEFEPIME HYDROCHLORIDE
     Indication: SEPTIC SHOCK
  4. VANCOMYCIN [Concomitant]
     Active Substance: VANCOMYCIN
     Indication: SEPTIC SHOCK
  5. HYPERTONIC SALINE SOLUTION [Concomitant]
     Active Substance: SODIUM CHLORIDE
     Indication: INTRACRANIAL PRESSURE INCREASED
     Dosage: 120 MEQ, UNK
     Route: 040
  6. PENTOBARBITAL SODIUM. [Suspect]
     Active Substance: PENTOBARBITAL SODIUM
     Dosage: 2.5 MG/KG/H
     Route: 042
  7. PENTOBARBITAL SODIUM. [Suspect]
     Active Substance: PENTOBARBITAL SODIUM
     Dosage: 10 MG/KG, ONCE
     Route: 040
  8. VASOPRESSIN. [Concomitant]
     Active Substance: VASOPRESSIN
     Indication: HYPOTENSION
  9. PENTOBARBITAL SODIUM. [Suspect]
     Active Substance: PENTOBARBITAL SODIUM
     Indication: INTRACRANIAL PRESSURE INCREASED
     Dosage: 5 MG/KG/H
     Route: 042
  10. ROCURONIUM [Concomitant]
     Active Substance: ROCURONIUM BROMIDE
     Indication: INTRACRANIAL PRESSURE INCREASED
     Dosage: 100 MG, UNK
     Route: 040
  11. KETAMINE [Concomitant]
     Active Substance: KETAMINE
     Indication: INTRACRANIAL PRESSURE INCREASED
     Dosage: 100 MG, UNK
     Route: 040

REACTIONS (3)
  - Metabolic acidosis [Recovering/Resolving]
  - Hypotension [Unknown]
  - Renal failure [Recovered/Resolved]
